FAERS Safety Report 25322697 (Version 2)
Quarter: 2025Q3

REPORT INFORMATION
  Report Type: Report from Study
  Country: US (occurrence: US)
  Receive Date: 20250516
  Receipt Date: 20250822
  Transmission Date: 20251021
  Serious: No
  Sender: SANDOZ
  Company Number: US-SANDOZ-SDZ2024US056978

PATIENT
  Age: 16 Year
  Sex: Male

DRUGS (2)
  1. OMNITROPE [Suspect]
     Active Substance: SOMATROPIN
     Indication: Product used for unknown indication
     Dosage: 2.2 MG, QD
     Route: 058
     Dates: start: 20230304
  2. OMNITROPE [Suspect]
     Active Substance: SOMATROPIN
     Indication: Product used for unknown indication
     Dosage: 2.2 MG, QD
     Route: 058
     Dates: start: 20230304

REACTIONS (2)
  - Product storage error [Unknown]
  - Device breakage [Unknown]

NARRATIVE: CASE EVENT DATE: 20250425
